FAERS Safety Report 7872450-2 (Version None)
Quarter: 2011Q4

REPORT INFORMATION
  Report Type: 
  Country: None (occurrence: None)
  Receive Date: 20111030
  Receipt Date: 20110426
  Transmission Date: 20120403
  Serious: No
  Sender: FDA-Public Use
  Company Number: US-AMGEN-USASP2011021602

PATIENT
  Age: 57 Year
  Sex: Female
  Weight: 74.83 kg

DRUGS (9)
  1. ENBREL [Suspect]
     Indication: PRODUCT USED FOR UNKNOWN INDICATION
     Dosage: 50 MG, QWK
     Route: 058
  2. VITAMIN D [Concomitant]
     Dosage: 400 MG, UNK
     Route: 048
  3. LEXAPRO [Concomitant]
     Dosage: 5 MG, UNK
  4. CONCERTA [Concomitant]
     Dosage: 18 MG, UNK
  5. PLAQUENIL [Concomitant]
  6. LYRICA [Concomitant]
     Dosage: 25 MG, UNK
  7. PRILOSEC [Concomitant]
     Dosage: 2.5 MG, UNK
  8. FOLIC ACID W/VITAMIN B NOS [Concomitant]
  9. ATIVAN [Concomitant]
     Dosage: 0.5 MG, UNK

REACTIONS (1)
  - INJECTION SITE INDURATION [None]
